FAERS Safety Report 5916545-9 (Version None)
Quarter: 2008Q4

REPORT INFORMATION
  Report Type: 
  Country: None (occurrence: None)
  Receive Date: 20081013
  Receipt Date: 20081003
  Transmission Date: 20090506
  Serious: Yes (Hospitalization)
  Sender: FDA-Public Use
  Company Number: B0540140A

PATIENT
  Age: 53 Year
  Sex: Male

DRUGS (12)
  1. LAMOTRIGINE [Suspect]
     Indication: MENTAL DISORDER
     Dosage: 100MG PER DAY
     Dates: start: 20060801, end: 20070326
  2. SEROQUEL [Suspect]
     Dosage: 2TAB PER DAY
     Dates: start: 20050221, end: 20061104
  3. RIVOTRIL [Suspect]
     Indication: SEDATIVE THERAPY
     Dates: start: 20050808, end: 20080520
  4. SIMVASTATIN [Suspect]
     Dosage: 40MG PER DAY
     Dates: start: 20060303, end: 20080828
  5. PROPRANOLOL [Concomitant]
     Indication: HYPERTENSION
     Dosage: 40MG PER DAY
     Dates: start: 19911015
  6. LANSOPRAZOL [Concomitant]
     Dosage: 15MG PER DAY
     Dates: start: 19970904
  7. TERAZOSIN HCL [Concomitant]
     Dosage: 5MG PER DAY
  8. RHINOCORT [Concomitant]
     Dosage: 64UG TWICE PER DAY
     Route: 045
  9. METFORMIN HCL [Concomitant]
     Dosage: 500MG TWICE PER DAY
     Dates: start: 20051120
  10. RAMIPRIL [Concomitant]
     Indication: HYPERTENSION
  11. MULTI-VITAMINS [Concomitant]
  12. GARLIC TABLETS [Concomitant]

REACTIONS (10)
  - DEPRESSION [None]
  - DIZZINESS [None]
  - DYSURIA [None]
  - ERECTILE DYSFUNCTION [None]
  - FORMICATION [None]
  - INSOMNIA [None]
  - MEMORY IMPAIRMENT [None]
  - MUSCULAR WEAKNESS [None]
  - MYALGIA [None]
  - RASH [None]
